FAERS Safety Report 20742334 (Version 1)
Quarter: 2022Q2

REPORT INFORMATION
  Report Type: Spontaneous
  Country: FR (occurrence: FR)
  Receive Date: 20220424
  Receipt Date: 20220424
  Transmission Date: 20220720
  Serious: Yes (Hospitalization)
  Sender: FDA-Public Use
  Company Number: None

PATIENT
  Age: 81 Year
  Sex: Female
  Weight: 82.4 kg

DRUGS (12)
  1. AMIODARONE [Suspect]
     Active Substance: AMIODARONE
     Indication: Atrial fibrillation
     Dosage: 200 MG, FREQUENCY TIME- 1 DAY, THERAPY START DATE: ASKU
     Route: 048
     Dates: end: 20220321
  2. MIRTAZAPINE [Concomitant]
     Active Substance: MIRTAZAPINE
     Dosage: 15 MG, THERAPY START DATE: ASKU, FREQUENCY TIME- 1 DAY,
     Route: 048
     Dates: end: 20220321
  3. DULAGLUTIDE [Concomitant]
     Active Substance: DULAGLUTIDE
     Dosage: ((MAMMALS / HAMSTER / CELLULES CHO)), UNIT DOSE: 1.5 MG, FREQUENCY TIME- 1 WEEKS, THERAPY START DATE
     Route: 048
     Dates: end: 20220321
  4. APIXABAN [Concomitant]
     Active Substance: APIXABAN
     Dosage: 5 MG, THERAPY START DATE AND END DATE: ASKU, FREQUENCY TIME- 1 DAY
     Route: 048
  5. DAPAGLIFLOZIN [Concomitant]
     Active Substance: DAPAGLIFLOZIN
     Dosage: 10 MG, FREQUENCY TIME- 1 DAY, DURATION-3 MONTHS
     Route: 048
     Dates: start: 202112, end: 20220321
  6. URAPIDIL [Concomitant]
     Active Substance: URAPIDIL
     Dosage: 120 MG, THERAPY START DATE: ASKU, FREQUENCY TIME- 1 DAY
     Route: 048
     Dates: end: 20220321
  7. LANTUS [Concomitant]
     Active Substance: INSULIN GLARGINE
     Dosage: FORM STRENGTH 100 UNITS/ML, UNIT DOSE-40 IU, FREQUENCY TIME- 1 DAY, THERAPY START DATE: ASKU
     Route: 058
  8. FUROSEMIDE [Concomitant]
     Active Substance: FUROSEMIDE
     Dosage: 1000 MG, FREQUENCY TIME- 1 DAY, THERAPY START DATE: ASKU
     Route: 048
  9. SPIRONOLACTONE [Concomitant]
     Active Substance: SPIRONOLACTONE
     Dosage: 25 MG, FREQUENCY TIME- 1 DAY, DURATION-3 MONTHS
     Route: 048
     Dates: start: 202112, end: 20220321
  10. POTASSIUM CHLORIDE [Concomitant]
     Active Substance: POTASSIUM CHLORIDE
     Dosage: 2400 MG, FREQUENCY TIME- 1 DAY, THERAPY START DATE: ASKU
     Route: 048
  11. NOVORAPID [Concomitant]
     Active Substance: INSULIN ASPART
     Dosage: 40 IU, THERAPY START DATE: ASKU, FREQUENCY TIME- 1 DAY,
     Route: 058
  12. AMLODIPINE [Concomitant]
     Active Substance: AMLODIPINE BESYLATE
     Dosage: UNIT DOSE: 10 MG, FREQUENCY TIME- 1 DAY, THERAPY START DATE: ASKU
     Route: 048
     Dates: end: 20220321

REACTIONS (1)
  - Bradycardia [Recovered/Resolved]

NARRATIVE: CASE EVENT DATE: 20220321
